FAERS Safety Report 18866532 (Version 2)
Quarter: 2021Q1

REPORT INFORMATION
  Report Type: Report from Study
  Country: US (occurrence: US)
  Receive Date: 20210209
  Receipt Date: 20210312
  Transmission Date: 20210420
  Serious: No
  Sender: FDA-Public Use
  Company Number: NVSC2021US023056

PATIENT
  Sex: Female

DRUGS (1)
  1. COSENTYX [Suspect]
     Active Substance: SECUKINUMAB
     Indication: PSORIASIS
     Dosage: UNK
     Route: 065

REACTIONS (10)
  - Anxiety [Unknown]
  - Fatigue [Unknown]
  - Onychomadesis [Unknown]
  - Nasal congestion [Unknown]
  - Feeling abnormal [Unknown]
  - Dry mouth [Unknown]
  - Alopecia [Unknown]
  - Injection site pain [Unknown]
  - Pustular psoriasis [Unknown]
  - Hypersensitivity [Unknown]
